FAERS Safety Report 15833914 (Version 1)
Quarter: 2019Q1

REPORT INFORMATION
  Report Type: Spontaneous
  Country: US (occurrence: US)
  Receive Date: 20190116
  Receipt Date: 20190116
  Transmission Date: 20190417
  Serious: No
  Sender: FDA-Public Use
  Company Number: US-ASTRAZENECA-2018SF70342

PATIENT
  Age: 870 Month
  Sex: Female
  Weight: 54 kg

DRUGS (2)
  1. CRESTOR [Suspect]
     Active Substance: ROSUVASTATIN CALCIUM
     Indication: BLOOD CHOLESTEROL INCREASED
     Dosage: ALTERNATE DAYS AS NEEDED
     Route: 048
  2. CRESTOR [Suspect]
     Active Substance: ROSUVASTATIN CALCIUM
     Indication: BLOOD CHOLESTEROL INCREASED
     Route: 048
     Dates: start: 2016

REACTIONS (5)
  - Urticaria [Unknown]
  - Intentional product misuse [Unknown]
  - Rash [Unknown]
  - Pruritus [Unknown]
  - Product physical issue [Unknown]

NARRATIVE: CASE EVENT DATE: 201811
